FAERS Safety Report 23578695 (Version 2)
Quarter: 2024Q1

REPORT INFORMATION
  Report Type: Spontaneous
  Country: FR (occurrence: FR)
  Receive Date: 20240229
  Receipt Date: 20240304
  Transmission Date: 20240410
  Serious: Yes (Other)
  Sender: FDA-Public Use
  Company Number: None

PATIENT
  Age: 73 Year
  Sex: Male
  Weight: 48 kg

DRUGS (13)
  1. FIDAXOMICIN [Suspect]
     Active Substance: FIDAXOMICIN
     Indication: Clostridium difficile infection
     Dosage: 200 MG, TWICE DAILY
     Route: 048
     Dates: start: 20231228, end: 20240104
  2. LANSOPRAZOLE [Suspect]
     Active Substance: LANSOPRAZOLE
     Indication: Product used for unknown indication
     Dosage: 15 MILLIGRAM, QD
     Route: 048
     Dates: start: 20231228, end: 20240117
  3. CEFTRIAXONE SODIUM [Suspect]
     Active Substance: CEFTRIAXONE SODIUM
     Indication: Lung disorder
     Dosage: 1 GRAM, QD
     Route: 042
     Dates: start: 20231216, end: 20231223
  4. METRONIDAZOLE [Suspect]
     Active Substance: METRONIDAZOLE
     Indication: Lung disorder
     Dosage: 250 MILLIGRAM, Q8H
     Route: 042
     Dates: start: 20231216, end: 20231222
  5. PANTOPRAZOLE [Suspect]
     Active Substance: PANTOPRAZOLE
     Indication: Product used for unknown indication
     Dosage: 40 MILLIGRAM, QD
     Route: 042
     Dates: start: 20231216, end: 20231226
  6. MAGNESIUM CARBONATE [Concomitant]
     Active Substance: MAGNESIUM CARBONATE
     Indication: Product used for unknown indication
     Dosage: UNK
     Route: 065
  7. CALCIUM PHOSPHATE, DIBASIC, ANHYDROUS\MAGNESIUM GLYCEROPHOSPHATE\PHOSP [Concomitant]
     Active Substance: CALCIUM PHOSPHATE, DIBASIC, ANHYDROUS\MAGNESIUM GLYCEROPHOSPHATE\PHOSPHORIC ACID\SODIUM PHOSPHATE, D
     Indication: Product used for unknown indication
     Dosage: UNK
  8. CALCIPARINE [Concomitant]
     Active Substance: HEPARIN CALCIUM
     Indication: Product used for unknown indication
     Dosage: UNK
     Route: 065
  9. ALBUTEROL [Concomitant]
     Active Substance: ALBUTEROL
     Indication: Product used for unknown indication
     Dosage: UNK
  10. FOLIC ACID [Concomitant]
     Active Substance: FOLIC ACID
     Indication: Product used for unknown indication
     Dosage: UNK
     Route: 065
  11. IPRATROPIUM BROMIDE [Concomitant]
     Active Substance: IPRATROPIUM BROMIDE\IPRATROPIUM BROMIDE ANHYDROUS
     Dosage: UNK
  12. TAMSULOSIN [Concomitant]
     Active Substance: TAMSULOSIN
     Indication: Product used for unknown indication
     Dosage: UNK
     Route: 065
  13. IPRATROPIUM [Concomitant]
     Active Substance: IPRATROPIUM
     Indication: Product used for unknown indication
     Dosage: UNK UNK, UNKNOWN FREQ.
     Route: 065

REACTIONS (1)
  - Drug reaction with eosinophilia and systemic symptoms [Recovered/Resolved]

NARRATIVE: CASE EVENT DATE: 20240102
